FAERS Safety Report 17973992 (Version 3)
Quarter: 2020Q3

REPORT INFORMATION
  Report Type: Spontaneous
  Country: JP (occurrence: JP)
  Receive Date: 20200702
  Receipt Date: 20200806
  Transmission Date: 20201103
  Serious: Yes (Hospitalization)
  Sender: FDA-Public Use
  Company Number: JP-JNJFOC-20200638702

PATIENT
  Age: 2 Year
  Sex: Male

DRUGS (5)
  1. KENKETU GLOVENIN?I [Concomitant]
     Active Substance: HUMAN IMMUNOGLOBULIN G
     Indication: KAWASAKI^S DISEASE
     Dosage: 21.5 GRAM, QD
     Route: 041
     Dates: start: 20191202, end: 20191203
  2. ACETYLSALICYLIC ACID [Concomitant]
     Active Substance: ASPIRIN
     Indication: KAWASAKI^S DISEASE
     Dosage: 330 MILLIGRAM, QD
     Route: 048
     Dates: start: 20191204, end: 20191211
  3. KENKETU GLOVENIN?I [Concomitant]
     Active Substance: HUMAN IMMUNOGLOBULIN G
     Dosage: 21.5 GRAM, QD
     Route: 041
     Dates: start: 20191204, end: 20191205
  4. ACETYLSALICYLIC ACID [Concomitant]
     Active Substance: ASPIRIN
     Dosage: UNK
     Route: 048
  5. REMICADE [Suspect]
     Active Substance: INFLIXIMAB
     Indication: KAWASAKI^S DISEASE
     Dosage: 50 MILLIGRAM, QD
     Route: 042
     Dates: start: 20191205, end: 20191205

REACTIONS (1)
  - Human metapneumovirus test positive [Recovered/Resolved]
